FAERS Safety Report 5873712-0 (Version None)
Quarter: 2008Q3

REPORT INFORMATION
  Report Type: 
  Country: None (occurrence: None)
  Receive Date: 20080908
  Receipt Date: 20080902
  Transmission Date: 20090109
  Serious: Yes (Disabling)
  Sender: FDA-Public Use
  Company Number: FR-WYE-G01674008

PATIENT
  Sex: Female
  Weight: 70 kg

DRUGS (8)
  1. TORISEL [Suspect]
     Indication: RENAL CANCER METASTATIC
     Route: 042
     Dates: start: 20080215, end: 20080401
  2. TORISEL [Suspect]
     Route: 042
     Dates: start: 20080401
  3. DURAGESIC-100 [Concomitant]
     Dosage: 75 UG/H STRENGTH; FREQUENCY UNSPECIFIED
     Route: 062
     Dates: start: 20071008
  4. POLARAMINE [Concomitant]
     Route: 048
     Dates: start: 20080208
  5. MORPHINE [Concomitant]
     Route: 048
     Dates: start: 20071008
  6. ZYRTEC [Concomitant]
     Route: 048
     Dates: start: 20080208
  7. LAROXYL [Concomitant]
     Dates: start: 20071008
  8. PONSTYL [Concomitant]
     Dosage: 750 MG TOTAL DAILY
     Route: 048
     Dates: start: 20071008

REACTIONS (4)
  - ABDOMINAL DISTENSION [None]
  - MUCOUS MEMBRANE DISORDER [None]
  - OEDEMA PERIPHERAL [None]
  - SKIN REACTION [None]
